FAERS Safety Report 7395252-2 (Version None)
Quarter: 2011Q2

REPORT INFORMATION
  Report Type: 
  Country: None (occurrence: None)
  Receive Date: 20110405
  Receipt Date: 20110323
  Transmission Date: 20111010
  Serious: Yes (Hospitalization)
  Sender: FDA-Public Use
  Company Number: AU-CELGENEUS-008-FK228-11032703

PATIENT
  Sex: Female

DRUGS (10)
  1. DEXAMETHASONE [Suspect]
     Indication: MULTIPLE MYELOMA
     Dosage: 20 MILLIGRAM
     Route: 065
     Dates: start: 20110322
  2. VALTREX [Concomitant]
     Dosage: 500
     Route: 048
     Dates: start: 20110322
  3. KYTRIL [Concomitant]
     Indication: NAUSEA
     Dosage: 3 MILLIGRAM
     Route: 051
     Dates: start: 20110322, end: 20110322
  4. COVERSYL [Concomitant]
     Indication: RENAL IMPAIRMENT
     Dosage: 4 MILLIGRAM
     Route: 048
     Dates: start: 20100101
  5. MAXALON [Concomitant]
     Dosage: 10 MILLIGRAM
     Route: 051
     Dates: start: 20110323
  6. CENTRUM [Concomitant]
     Indication: VITAMIN SUPPLEMENTATION
     Dosage: 1
     Route: 048
     Dates: start: 20080101
  7. BACTRIM [Concomitant]
     Dosage: 180
     Route: 051
     Dates: start: 20110322
  8. BORTEZOMIB [Suspect]
     Indication: MULTIPLE MYELOMA
     Dosage: 2 MILLIGRAM
     Route: 065
     Dates: start: 20110322
  9. ROMIDEPSIN [Suspect]
     Indication: MULTIPLE MYELOMA
     Dosage: 15 MILLIGRAM
     Route: 065
     Dates: start: 20110322
  10. ALLOPURINOL [Concomitant]
     Dosage: 300 MILLIGRAM
     Route: 051
     Dates: start: 20110322

REACTIONS (1)
  - TUMOUR LYSIS SYNDROME [None]
